FAERS Safety Report 20019188 (Version 2)
Quarter: 2022Q4

REPORT INFORMATION
  Report Type: Spontaneous
  Country: US (occurrence: US)
  Receive Date: 20211101
  Receipt Date: 20221010
  Transmission Date: 20230112
  Serious: Yes (Other)
  Sender: FDA-Public Use
  Company Number: US-SA-SAC20211027001773

PATIENT
  Age: 48 Year
  Sex: Female

DRUGS (1)
  1. ZANTAC [Suspect]
     Active Substance: RANITIDINE HYDROCHLORIDE
     Indication: Dyspepsia
     Dosage: 75 MG; FREQUENCY: OCCASIONAL
     Dates: start: 201601, end: 201801

REACTIONS (1)
  - Breast cancer stage IV [Not Recovered/Not Resolved]

NARRATIVE: CASE EVENT DATE: 20200601
